FAERS Safety Report 18871132 (Version 1)
Quarter: 2021Q1

REPORT INFORMATION
  Report Type: Spontaneous
  Country: ET (occurrence: ET)
  Receive Date: 20210210
  Receipt Date: 20210210
  Transmission Date: 20210420
  Serious: Yes (Other)
  Sender: FDA-Public Use
  Company Number: ET-SUN PHARMACEUTICAL INDUSTRIES LTD-2021R1-278015

PATIENT
  Age: 43 Year
  Sex: Male

DRUGS (4)
  1. CHLORPROMAZINE. [Suspect]
     Active Substance: CHLORPROMAZINE
     Indication: SCHIZOPHRENIA
     Dosage: 200 MILLIGRAM, DAILY
     Route: 065
  2. CHLORPROMAZINE. [Suspect]
     Active Substance: CHLORPROMAZINE
     Dosage: 100 MILLIGRAM, DAILY
     Route: 065
  3. CHLORPROMAZINE. [Suspect]
     Active Substance: CHLORPROMAZINE
     Dosage: 200 MILLIGRAM, DAILY
     Route: 065
  4. CHLORPROMAZINE. [Suspect]
     Active Substance: CHLORPROMAZINE
     Dosage: 50 MILLIGRAM, DAILY
     Route: 065

REACTIONS (1)
  - Tardive dyskinesia [Unknown]
